FAERS Safety Report 8123009-3 (Version None)
Quarter: 2012Q1

REPORT INFORMATION
  Report Type: 
  Country: None (occurrence: None)
  Receive Date: 20120208
  Receipt Date: 20120203
  Transmission Date: 20120608
  Serious: Yes (Death, Other)
  Sender: FDA-Public Use
  Company Number: US-PFIZER INC-2008069722

PATIENT
  Sex: Male

DRUGS (1)
  1. CHANTIX [Suspect]
     Dates: start: 20071201

REACTIONS (10)
  - COMPLETED SUICIDE [None]
  - DEPRESSION [None]
  - ABNORMAL DREAMS [None]
  - HOMICIDAL IDEATION [None]
  - AGGRESSION [None]
  - ABNORMAL BEHAVIOUR [None]
  - MOOD ALTERED [None]
  - PALPITATIONS [None]
  - AGITATION [None]
  - SUICIDAL IDEATION [None]
